FAERS Safety Report 13822702 (Version 1)
Quarter: 2017Q3

REPORT INFORMATION
  Report Type: Spontaneous
  Country: US (occurrence: US)
  Receive Date: 20170801
  Receipt Date: 20170801
  Transmission Date: 20171127
  Serious: Yes (Hospitalization)
  Sender: FDA-Public Use
  Company Number: US-MYLANLABS-2017M1046874

PATIENT

DRUGS (2)
  1. AMOXICILLIN CLAVULANIC ACID [Suspect]
     Active Substance: AMOXICILLIN\CLAVULANIC ACID
     Indication: GASTROINTESTINAL BACTERIAL OVERGROWTH
     Dosage: AMOXICILLIN/CLAVULANIC ACID 500/125 MG TWICE DAILY FOR FOUR WEEKS
     Route: 065
  2. METRONIDAZOLE. [Suspect]
     Active Substance: METRONIDAZOLE
     Indication: GASTROINTESTINAL BACTERIAL OVERGROWTH
     Dosage: 500 MG, TID
     Route: 065

REACTIONS (2)
  - Alcohol poisoning [Recovered/Resolved]
  - Overgrowth fungal [Recovered/Resolved]
